FAERS Safety Report 5553625-4 (Version None)
Quarter: 2007Q4

REPORT INFORMATION
  Report Type: 
  Country: None (occurrence: None)
  Receive Date: 20071213
  Receipt Date: 20071130
  Transmission Date: 20080405
  Serious: Yes (Other)
  Sender: FDA-Public Use
  Company Number: PHEH2007US11568

PATIENT
  Sex: Male

DRUGS (1)
  1. ZELNORM [Suspect]
     Indication: CONSTIPATION

REACTIONS (34)
  - ABDOMINAL CAVITY DRAINAGE [None]
  - ABDOMINAL PAIN [None]
  - ABDOMINAL PAIN UPPER [None]
  - ADHESIOLYSIS [None]
  - AORTIC CALCIFICATION [None]
  - BILE DUCT OBSTRUCTION [None]
  - BILE DUCT STONE [None]
  - CHOLANGIOGRAM [None]
  - CHOLECYSTECTOMY [None]
  - CHOLECYSTITIS CHRONIC [None]
  - CHOLEDOCHOLITHOTOMY [None]
  - CHOLELITHIASIS [None]
  - CHOLESTASIS [None]
  - COLITIS [None]
  - DIVERTICULUM INTESTINAL [None]
  - GASTRIC ULCER [None]
  - GASTRITIS EROSIVE [None]
  - HYPERPLASTIC CHOLECYSTOPATHY [None]
  - LIVER FUNCTION TEST ABNORMAL [None]
  - MUSCULOSKELETAL DISORDER [None]
  - NAUSEA [None]
  - OESOPHAGITIS ULCERATIVE [None]
  - OESOPHAGOGASTRODUODENOSCOPY [None]
  - OSTEOARTHRITIS [None]
  - PAIN [None]
  - PANCREATIC DISORDER [None]
  - PANCREATIC SPHINCTERECTOMY [None]
  - PANCREATOGRAPHY [None]
  - PERINEAL PAIN [None]
  - RENAL CYST [None]
  - SENSORY DISTURBANCE [None]
  - UMBILICAL HERNIA [None]
  - UMBILICAL HERNIA REPAIR [None]
  - VOMITING [None]
